FAERS Safety Report 15983805 (Version 5)
Quarter: 2019Q3

REPORT INFORMATION
  Report Type: Spontaneous
  Country: PT (occurrence: PT)
  Receive Date: 20190220
  Receipt Date: 20190711
  Transmission Date: 20191004
  Serious: Yes (Hospitalization, Other)
  Sender: FDA-Public Use
  Company Number: PT-ACCORD-107974

PATIENT
  Age: 26 Year
  Sex: Male

DRUGS (17)
  1. SPIRONOLACTONE. [Suspect]
     Active Substance: SPIRONOLACTONE
     Indication: PRODUCT USED FOR UNKNOWN INDICATION
     Dosage: ON THE DAY OF COMPETITION
  2. MESTEROLONE [Suspect]
     Active Substance: MESTEROLONE
     Indication: PERFORMANCE ENHANCING PRODUCT USE
     Dosage: 25 MG 4-6ID, 6 WEEKS CYCLE BEFORE THE COMPETITION
  3. LEVOTHYROXINE. [Suspect]
     Active Substance: LEVOTHYROXINE
     Indication: PRODUCT USED FOR UNKNOWN INDICATION
     Dosage: 100 MCG ID, 6 WEEKS CYCLE BEFORE THE COMPETITION
  4. TESTOSTERONE. [Suspect]
     Active Substance: TESTOSTERONE
     Indication: PRODUCT USED FOR UNKNOWN INDICATION
     Dosage: 250 MG ID, 6 WEEKS CYCLE BEFORE THE COMPETITION
  5. LIOTHYRONINE [Suspect]
     Active Substance: LIOTHYRONINE
     Indication: PRODUCT USED FOR UNKNOWN INDICATION
     Dosage: 25 MCG BID, 6 WEEKS CYCLE BEFORE THE COMPETITION
  6. SUSTANON [Suspect]
     Active Substance: TESTOSTERONE
     Indication: PRODUCT USED FOR UNKNOWN INDICATION
     Dosage: 250 MG TWICE WEEKLY, 6 WEEKS CYCLE BEFORE THE COMPETITION
  7. ALTIZIDE [Suspect]
     Active Substance: ALTHIAZIDE
     Indication: PRODUCT USED FOR UNKNOWN INDICATION
     Dosage: ON THE DAY OF COMPETITION
  8. CLENBUTEROL [Suspect]
     Active Substance: CLENBUTEROL
     Indication: PERFORMANCE ENHANCING PRODUCT USE
     Dosage: TID, 6 WEEKS CYCLE BEFORE THE COMPETITION
  9. ANASTROZOLE. [Suspect]
     Active Substance: ANASTROZOLE
     Indication: PRODUCT USED FOR UNKNOWN INDICATION
     Dosage: 1 MG ID, 6 WEEKS CYCLE BEFORE THE COMPETITION
     Route: 048
  10. FLUOXYMESTERONE [Suspect]
     Active Substance: FLUOXYMESTERONE
     Indication: PRODUCT USED FOR UNKNOWN INDICATION
     Dosage: 75 MG ID, 6 WEEKS CYCLE BEFORE THE COMPETITION
  11. SPIRONOLACTONE. [Concomitant]
     Active Substance: SPIRONOLACTONE
  12. ASCORBIC ACID/ERGOCALCIFEROL/FOLIC ACID/NICOTINAMIDE/PANTHENOL/RETINOL/RIBOFLAVIN/THIAMINE HYDROCHLO [Suspect]
     Active Substance: ASCORBIC ACID\ERGOCALCIFEROL\FOLIC ACID\NIACIN\PANTHENOL\RETINOL\RIBOFLAVIN\THIAMINE HYDROCHLORIDE
     Indication: PRODUCT USED FOR UNKNOWN INDICATION
     Dosage: 6 WEEKS CYCLE BEFORE THE COMPETITION
  13. TESTOSTERONE. [Suspect]
     Active Substance: TESTOSTERONE
     Indication: PRODUCT USED FOR UNKNOWN INDICATION
     Dosage: 500 MG/WK 6 WEEKS CYCLE BEFORE THE COMPETITION
  14. TRENBOLONE [Suspect]
     Active Substance: TRENBOLONE
     Indication: PRODUCT USED FOR UNKNOWN INDICATION
     Dosage: 100 MG EVERY OTHER DAY, 6 WEEKS CYCLE BEFORE THE COMPETITION
  15. CABERGOLINE. [Suspect]
     Active Substance: CABERGOLINE
     Indication: PRODUCT USED FOR UNKNOWN INDICATION
     Dosage: 0.25 MG EVERY OTHER DAY, 6 WEEKS CYCLE BEFORE THE COMPETITION
  16. STANOZOLOL [Suspect]
     Active Substance: STANOZOLOL
     Indication: PRODUCT USED FOR UNKNOWN INDICATION
     Dosage: 40 MG ID, 6 WEEKS CYCLE BEFORE THE COMPETITION
  17. DROSTANOLONE [Suspect]
     Active Substance: DROMOSTANOLONE
     Indication: PRODUCT USED FOR UNKNOWN INDICATION
     Dosage: 100 MG EVERY OTHER DAY, 6 WEEKS CYCLE BEFORE THE COMPETITION

REACTIONS (7)
  - Haematocrit increased [Unknown]
  - Diabetes mellitus [Recovered/Resolved]
  - Drug abuse [Unknown]
  - Product use issue [Unknown]
  - Secondary hypogonadism [Recovered/Resolved]
  - Autoimmune thyroiditis [Recovered/Resolved]
  - Performance enhancing product use [Unknown]
